FAERS Safety Report 8337201-6 (Version None)
Quarter: 2012Q2

REPORT INFORMATION
  Report Type: 
  Country: None (occurrence: None)
  Receive Date: 20120504
  Receipt Date: 20120430
  Transmission Date: 20120825
  Serious: Yes (Other)
  Sender: FDA-Public Use
  Company Number: US-PFIZER INC-2012032357

PATIENT
  Sex: Female
  Weight: 63.039 kg

DRUGS (13)
  1. LIPITOR [Suspect]
     Indication: MYOCARDIAL INFARCTION
  2. ATORVASTATIN CALCIUM [Suspect]
     Indication: MYOCARDIAL INFARCTION
  3. FUROSEMIDE [Suspect]
     Indication: CARDIAC DISORDER
     Dosage: 20 MG, 3X/WEEK
  4. LIPITOR [Suspect]
     Indication: BLOOD CHOLESTEROL INCREASED
     Dosage: 10 MG, 1X/DAY
     Route: 048
     Dates: start: 19970101, end: 20120101
  5. ATORVASTATIN CALCIUM [Suspect]
     Indication: ATRIOVENTRICULAR BLOCK
  6. WARFARIN [Concomitant]
     Indication: BLOOD DISORDER
     Dosage: UNK
  7. METOPROLOL [Concomitant]
     Indication: CARDIAC DISORDER
     Dosage: UNK
  8. ATORVASTATIN CALCIUM (LIPITOR) [Suspect]
     Indication: CARDIAC FAILURE CONGESTIVE
     Dosage: 10 MG, DAILY
     Dates: end: 20120427
  9. ATORVASTATIN CALCIUM [Suspect]
     Indication: CEREBROVASCULAR ACCIDENT PROPHYLAXIS
  10. LIPITOR [Suspect]
     Indication: CARDIAC FAILURE CONGESTIVE
     Dosage: UNK
     Dates: start: 20120101
  11. LIPITOR [Suspect]
     Indication: CEREBROVASCULAR ACCIDENT PROPHYLAXIS
  12. LIPITOR [Suspect]
     Indication: ATRIOVENTRICULAR BLOCK
  13. ENALAPRIL [Concomitant]
     Indication: HYPERTENSION
     Dosage: 5 MG, AS NEEDED

REACTIONS (19)
  - CARDIAC DISORDER [None]
  - EYELID DISORDER [None]
  - FEELING ABNORMAL [None]
  - RENAL DISORDER [None]
  - BLOOD GLUCOSE DECREASED [None]
  - MALAISE [None]
  - WEIGHT INCREASED [None]
  - SWELLING [None]
  - ASTHENIA [None]
  - NECK PAIN [None]
  - BLOOD TRIGLYCERIDES INCREASED [None]
  - HEAD DISCOMFORT [None]
  - OEDEMA PERIPHERAL [None]
  - ALOPECIA [None]
  - DIZZINESS [None]
  - HEADACHE [None]
  - DRUG INEFFECTIVE [None]
  - LIVER DISORDER [None]
  - DYSSTASIA [None]
